FAERS Safety Report 16067826 (Version 3)
Quarter: 2019Q2

REPORT INFORMATION
  Report Type: Report from Study
  Country: MX (occurrence: MX)
  Receive Date: 20190313
  Receipt Date: 20190606
  Transmission Date: 20190711
  Serious: Yes (Hospitalization, Disabling, Other)
  Sender: FDA-Public Use
  Company Number: MX-EXELIXIS-XL18419019060

PATIENT
  Age: 79 Year
  Sex: Female
  Weight: 78 kg

DRUGS (37)
  1. CABOZANTINIB [Suspect]
     Active Substance: CABOZANTINIB
     Indication: RENAL CELL CARCINOMA
     Dosage: 40 MILLIGRAM
     Route: 048
     Dates: start: 20180717
  2. LIXISENATIDE [Concomitant]
     Active Substance: LIXISENATIDE
     Indication: PRODUCT USED FOR UNKNOWN INDICATION
     Dosage: 1 DOSAGE FORM
     Route: 058
     Dates: start: 20181218
  3. INSULINE                           /01223401/ [Concomitant]
     Active Substance: INSULIN NOS
     Indication: PRODUCT USED FOR UNKNOWN INDICATION
     Dosage: 1 DOSAGE FORM
     Route: 058
     Dates: start: 20181218
  4. PHENAZOPYRIDINE. [Concomitant]
     Active Substance: PHENAZOPYRIDINE
     Indication: DYSURIA
     Dosage: 300 MILLIGRAM
     Route: 048
     Dates: start: 20190213
  5. LEVOFLOXACINE                      /01278901/ [Concomitant]
     Active Substance: LEVOFLOXACIN
     Indication: DIARRHOEA
     Dosage: 750 MILLIGRAM
     Route: 048
     Dates: start: 20180920
  6. LEVOTHYROXINE. [Concomitant]
     Active Substance: LEVOTHYROXINE
     Indication: HYPOTHYROIDISM
     Dosage: 10 MILLIGRAM
     Route: 048
     Dates: start: 20190104
  7. PARACETAMOL [Concomitant]
     Active Substance: ACETAMINOPHEN
     Indication: PAIN
     Dosage: 1000 MILLIGRAM
     Route: 048
     Dates: start: 20190130
  8. OMEPRAZOL                          /00661201/ [Concomitant]
     Active Substance: OMEPRAZOLE
     Indication: PRODUCT USED FOR UNKNOWN INDICATION
     Dosage: 20 MILLIGRAM
     Route: 048
     Dates: start: 20170717
  9. NIVOLUMAB [Suspect]
     Active Substance: NIVOLUMAB
     Indication: RENAL CELL CARCINOMA
     Dosage: 240 MILLIGRAM
     Route: 042
     Dates: start: 20180717
  10. CELECOXIB. [Concomitant]
     Active Substance: CELECOXIB
     Indication: HEADACHE
     Dosage: 200 MILLIGRAM
     Route: 048
     Dates: start: 20180829
  11. PREDNISONE. [Concomitant]
     Active Substance: PREDNISONE
     Indication: ADRENAL INSUFFICIENCY
     Dosage: 10 MILLIGRAM
     Route: 048
     Dates: start: 20180828
  12. PREDNISONE. [Concomitant]
     Active Substance: PREDNISONE
     Dosage: 50 MG, UNK
     Route: 048
     Dates: start: 20181119
  13. METOCLOPRAMIDE. [Concomitant]
     Active Substance: METOCLOPRAMIDE
     Indication: VOMITING
     Dosage: 30 MILLIGRAM
     Route: 048
     Dates: start: 20180913
  14. LEVOTHYROXINE. [Concomitant]
     Active Substance: LEVOTHYROXINE
     Dosage: 100 MCG
     Route: 048
     Dates: start: 20190219, end: 20190223
  15. FUROSEMIDE. [Concomitant]
     Active Substance: FUROSEMIDE
     Indication: OEDEMA
     Dosage: 40 MILLIGRAM
     Route: 048
     Dates: start: 20190130
  16. NIVOLUMAB [Suspect]
     Active Substance: NIVOLUMAB
     Dosage: UNK
     Dates: start: 20190213
  17. METFORMINE                         /00082701/ [Concomitant]
     Active Substance: METFORMIN HYDROCHLORIDE
     Indication: PRODUCT USED FOR UNKNOWN INDICATION
     Dosage: 850 MILLIGRAM
     Route: 048
     Dates: start: 19970101
  18. PREGABALINE [Concomitant]
     Active Substance: PREGABALIN
     Dosage: 75 MG
     Route: 048
     Dates: start: 20190219, end: 20190220
  19. CABOZANTINIB [Suspect]
     Active Substance: CABOZANTINIB
     Dosage: 10 MG, UNK
     Dates: start: 20190130, end: 20190216
  20. LACTULOSE. [Concomitant]
     Active Substance: LACTULOSE
     Indication: CONSTIPATION
     Dosage: 10 GRAM
     Route: 048
     Dates: start: 20180807
  21. PAROXETINE. [Concomitant]
     Active Substance: PAROXETINE
     Dosage: 20 MG, UNK
     Route: 048
     Dates: start: 20180829
  22. LEVOFLOXACINE                      /01278901/ [Concomitant]
     Active Substance: LEVOFLOXACIN
     Indication: CYSTITIS
  23. BUPRENORPHINE. [Concomitant]
     Active Substance: BUPRENORPHINE
     Dosage: 100 MILLIGRAM
     Route: 062
     Dates: start: 20190219
  24. CLINDAMICIN                        /00166002/ [Concomitant]
     Active Substance: CLINDAMYCIN
     Indication: HERPES ZOSTER
     Dosage: 900 MILLIGRAM
     Route: 048
     Dates: start: 20190130
  25. TRAMADOL. [Concomitant]
     Active Substance: TRAMADOL
     Indication: ABDOMINAL PAIN
     Dosage: 100 MILLIGRAM
     Route: 048
     Dates: start: 20190130
  26. PAROXETINE. [Concomitant]
     Active Substance: PAROXETINE
     Indication: DEPRESSION
     Dosage: 20 MILLIGRAM
     Route: 048
     Dates: start: 20180814
  27. LOSARTAN. [Concomitant]
     Active Substance: LOSARTAN
     Indication: PRODUCT USED FOR UNKNOWN INDICATION
     Dosage: 80 MILLIGRAM
     Route: 048
     Dates: start: 20180822
  28. INSULIN [Concomitant]
     Active Substance: INSULIN NOS
     Indication: PRODUCT USED FOR UNKNOWN INDICATION
     Dosage: 1 DOSAGE FORM
     Route: 058
     Dates: start: 20181106
  29. LACTULOSE. [Concomitant]
     Active Substance: LACTULOSE
     Dosage: 10 G, UNK
     Route: 048
     Dates: start: 20180927
  30. METOCLOPRAMIDE. [Concomitant]
     Active Substance: METOCLOPRAMIDE
     Indication: NAUSEA
  31. SENOSIDE [Concomitant]
     Indication: CONSTIPATION
     Dosage: 8.6 MILLIGRAM
     Route: 048
     Dates: start: 20181010
  32. INSULINE NPH [Concomitant]
     Active Substance: INSULIN PORK\INSULIN PURIFIED PORK
     Indication: PRODUCT USED FOR UNKNOWN INDICATION
     Dosage: 1 DOSAGE FORM
     Route: 058
     Dates: start: 20171001
  33. PREGABALINE [Concomitant]
     Active Substance: PREGABALIN
     Indication: HERPES ZOSTER
     Dosage: 150 MILLIGRAM
     Route: 048
     Dates: start: 20190117
  34. METOPROLOL. [Concomitant]
     Active Substance: METOPROLOL
     Indication: TACHYCARDIA
     Dosage: 100 MILLIGRAM
     Route: 048
     Dates: start: 20190117
  35. ITOPRIDE [Concomitant]
     Active Substance: ITOPRIDE
     Indication: ABDOMINAL DISTENSION
     Dosage: 150 MILLIGRAM
     Route: 048
     Dates: start: 20180807
  36. PREDNISONE. [Concomitant]
     Active Substance: PREDNISONE
     Indication: HYPOGLYCAEMIA
     Dosage: 10 MG, UNK
     Route: 048
     Dates: start: 20180913
  37. BUPRENORPHINE. [Concomitant]
     Active Substance: BUPRENORPHINE
     Indication: HERPES ZOSTER
     Dosage: 10 MILLIGRAM
     Route: 058
     Dates: start: 20190103

REACTIONS (3)
  - Peripheral sensorimotor neuropathy [Recovering/Resolving]
  - Seizure [Recovering/Resolving]
  - Diarrhoea [Recovered/Resolved]

NARRATIVE: CASE EVENT DATE: 20190219
